FAERS Safety Report 5200507-3 (Version None)
Quarter: 2007Q1

REPORT INFORMATION
  Report Type: 
  Country: None (occurrence: None)
  Receive Date: 20070105
  Receipt Date: 20061228
  Transmission Date: 20070707
  Serious: Yes (Hospitalization)
  Sender: FDA-Public Use
  Company Number: FR-ABBOTT-07P-056-0354674-00

PATIENT
  Age: 74 Year
  Sex: Male

DRUGS (21)
  1. DEPAKENE [Suspect]
     Indication: GRAND MAL CONVULSION
     Route: 048
     Dates: start: 20061107, end: 20061108
  2. CLONAZEPAM [Suspect]
     Indication: CONVULSION
     Route: 065
     Dates: start: 20061106, end: 20061106
  3. METHYLPREDNISOLONE SODIUM SUCCINATE [Suspect]
     Indication: DRUG USE FOR UNKNOWN INDICATION
     Route: 065
     Dates: start: 20061107, end: 20061108
  4. CLAVULIN [Suspect]
     Indication: ASPIRATION
     Route: 065
     Dates: start: 20061106, end: 20061108
  5. NICARDIPINE HYDROCHLORIDE [Suspect]
     Indication: HYPERTENSION
     Route: 042
     Dates: start: 20061106, end: 20061107
  6. FOSPHENYTOIN [Suspect]
     Indication: CONVULSION
     Route: 042
     Dates: start: 20061106, end: 20061106
  7. MIDAZOLAM HYDROCHLORIDE [Suspect]
     Indication: SEDATION
     Route: 042
     Dates: start: 20061106
  8. FENTANYL [Suspect]
     Indication: SEDATION
     Route: 042
     Dates: start: 20061106
  9. IPRATROPIUM BROMIDE [Suspect]
     Indication: DRUG USE FOR UNKNOWN INDICATION
     Route: 065
     Dates: start: 20061108, end: 20061108
  10. TERBUTALINE SULFATE [Suspect]
     Indication: DRUG USE FOR UNKNOWN INDICATION
     Route: 065
     Dates: start: 20061108, end: 20061108
  11. ATRACURIUM BESYLATE [Suspect]
     Indication: INTUBATION
     Route: 042
     Dates: start: 20061106, end: 20061106
  12. THIOPENTAL SODIUM [Suspect]
     Indication: INTUBATION
     Route: 042
     Dates: start: 20061106, end: 20061106
  13. RAMIPRIL [Suspect]
     Indication: HYPERTENSION
     Route: 048
     Dates: start: 20061108
  14. INSULIN [Suspect]
     Indication: DRUG USE FOR UNKNOWN INDICATION
     Route: 065
     Dates: start: 20061106
  15. ENALAPRIL MALEATE [Suspect]
     Indication: DRUG USE FOR UNKNOWN INDICATION
     Dates: start: 20061108
  16. BISOPROLOL FUMARATE [Concomitant]
     Indication: HYPERTENSION
     Route: 048
     Dates: end: 20061101
  17. BISOPROLOL FUMARATE [Concomitant]
     Route: 048
     Dates: start: 20061108
  18. ACETAMINOPHEN [Concomitant]
     Indication: DRUG USE FOR UNKNOWN INDICATION
     Route: 042
     Dates: start: 20061106, end: 20061108
  19. BLOPRESS PLUS [Concomitant]
     Indication: DRUG USE FOR UNKNOWN INDICATION
     Route: 048
  20. ZOLPIDEM TARTRATE [Concomitant]
     Indication: DRUG USE FOR UNKNOWN INDICATION
     Route: 048
  21. CLOPIDOGREL BISULFATE [Concomitant]
     Indication: DRUG USE FOR UNKNOWN INDICATION
     Route: 048

REACTIONS (2)
  - ACUTE GENERALISED EXANTHEMATOUS PUSTULOSIS [None]
  - LEUKOCYTOSIS [None]
